FAERS Safety Report 22343911 (Version 2)
Quarter: 2023Q2

REPORT INFORMATION
  Report Type: Report from Study
  Country: US (occurrence: None)
  Receive Date: 20230519
  Receipt Date: 20230614
  Transmission Date: 20230721
  Serious: Yes (Hospitalization)
  Sender: FDA-Public Use
  Company Number: US-ROCHE-3352687

PATIENT
  Age: 77 Year
  Sex: Male
  Weight: 81.3 kg

DRUGS (2)
  1. OBINUTUZUMAB [Suspect]
     Active Substance: OBINUTUZUMAB
     Indication: Chronic lymphocytic leukaemia
     Dosage: ON 24/AUG/2020  RECEIVED LAST DOSE OF OBINUTUZUMAB
     Route: 042
     Dates: start: 20200406
  2. IBRUTINIB [Suspect]
     Active Substance: IBRUTINIB
     Indication: Chronic lymphocytic leukaemia
     Dosage: ON 12/APR/2023 RECEIVED LAST DOSE OF IBRUTINIB, TOTAL DOSE 30660 MG
     Route: 048
     Dates: start: 20200406

REACTIONS (1)
  - COVID-19 [Recovering/Resolving]

NARRATIVE: CASE EVENT DATE: 20230501
